FAERS Safety Report 9725216 (Version 1)
Quarter: 2013Q4

REPORT INFORMATION
  Report Type: Spontaneous
  Country: US (occurrence: None)
  Receive Date: 20131202
  Receipt Date: 20131202
  Transmission Date: 20140711
  Serious: Yes (Disabling)
  Sender: FDA-Public Use
  Company Number: None

PATIENT
  Age: 58 Day
  Sex: Female
  Weight: 47.17 kg

DRUGS (1)
  1. BOTOX [Suspect]
     Dosage: 7 INJECTIONS 25 UNITS EACH, INJECTED INTO SPINAL AREA

REACTIONS (1)
  - Neck pain [None]
